FAERS Safety Report 20974360 (Version 1)
Quarter: 2022Q2

REPORT INFORMATION
  Report Type: Spontaneous
  Country: GB (occurrence: GB)
  Receive Date: 20220617
  Receipt Date: 20220617
  Transmission Date: 20220721
  Serious: Yes (Other)
  Sender: FDA-Public Use
  Company Number: GB-MYLANLABS-2022M1043996

PATIENT
  Sex: Female

DRUGS (1)
  1. ESTRADIOL [Suspect]
     Active Substance: ESTRADIOL
     Indication: Product used for unknown indication
     Dosage: UNK (2 MILLIGRAM)

REACTIONS (12)
  - Basedow^s disease [Unknown]
  - Dehydration [Unknown]
  - Sleep disorder [Unknown]
  - Nightmare [Unknown]
  - Muscle tightness [Unknown]
  - Tachycardia [Unknown]
  - Hot flush [Unknown]
  - Pain [Unknown]
  - Mood swings [Unknown]
  - Hyperhidrosis [Unknown]
  - Headache [Unknown]
  - Drug ineffective [Unknown]
